FAERS Safety Report 9099818 (Version 1)
Quarter: 2013Q1

REPORT INFORMATION
  Report Type: Spontaneous
  Country: JP (occurrence: JP)
  Receive Date: 20130214
  Receipt Date: 20130214
  Transmission Date: 20140127
  Serious: Yes (Other)
  Sender: FDA-Public Use
  Company Number: JP-ALLERGAN-1301974US

PATIENT
  Age: 76 Year
  Sex: Male

DRUGS (1)
  1. BOTOX [Suspect]
     Indication: TRIGEMINAL NEURALGIA
     Dosage: UNK UNK, SINGLE
     Route: 030
     Dates: start: 2010, end: 2010

REACTIONS (4)
  - Diabetes mellitus [Unknown]
  - Benign prostatic hyperplasia [Unknown]
  - Oropharyngeal pain [Unknown]
  - VIIth nerve paralysis [Unknown]
